FAERS Safety Report 4695960-8 (Version None)
Quarter: 2005Q2

REPORT INFORMATION
  Report Type: 
  Country: None (occurrence: None)
  Receive Date: 20050608
  Receipt Date: 20040921
  Transmission Date: 20051028
  Serious: Yes (Other)
  Sender: FDA-Public Use
  Company Number: 381236

PATIENT
  Sex: Male
  Weight: 3.9 kg

DRUGS (1)
  1. ACCUTANE [Suspect]
     Dosage: 40 MG 2 PER DAY ORAL
     Route: 048
     Dates: start: 19960615, end: 19960615

REACTIONS (3)
  - FLATULENCE [None]
  - LIVE BIRTH [None]
  - UMBILICAL CORD AROUND NECK [None]
